FAERS Safety Report 16225007 (Version 7)
Quarter: 2020Q2

REPORT INFORMATION
  Report Type: Spontaneous
  Country: US (occurrence: US)
  Receive Date: 20190422
  Receipt Date: 20200601
  Transmission Date: 20200713
  Serious: Yes (Other)
  Sender: FDA-Public Use
  Company Number: US-PFIZER INC-2019161835

PATIENT
  Age: 63 Year
  Sex: Female
  Weight: 88.45 kg

DRUGS (8)
  1. PREMARIN [Suspect]
     Active Substance: ESTROGENS, CONJUGATED
     Dosage: 20 MG, 1X/DAY
  2. LORAZEPAM. [Concomitant]
     Active Substance: LORAZEPAM
     Indication: ANXIETY
     Dosage: 1 MG, AS NEEDED
     Route: 048
     Dates: start: 2019
  3. ATIVAN [Concomitant]
     Active Substance: LORAZEPAM
     Indication: ANXIETY
  4. HYDROCHLOROTHIAZIDE/TRIAMTERENE [Concomitant]
     Active Substance: HYDROCHLOROTHIAZIDE\TRIAMTERENE
     Indication: BLOOD PRESSURE ABNORMAL
     Dosage: 1 DF, 1X/DAY (37.5MG/25MG CAPSULE ONCE A DAY )
     Route: 048
     Dates: start: 2019
  5. ATIVAN [Concomitant]
     Active Substance: LORAZEPAM
     Indication: STRESS
     Dosage: SMALL TABLET, TAKES OCCASIONALLY
  6. PREMARIN [Suspect]
     Active Substance: ESTROGENS, CONJUGATED
     Indication: MENOPAUSE
     Dosage: 0.125 MG, 1X/DAY
     Route: 048
  7. TRIAMTERENE. [Concomitant]
     Active Substance: TRIAMTERENE
     Indication: BLOOD PRESSURE ABNORMAL
     Dosage: 37.5 MG, AS NEEDED (37.5MG CAPSULE WHEN NEEDS IT)
  8. PREMARIN [Suspect]
     Active Substance: ESTROGENS, CONJUGATED
     Dosage: 125 MG, DAILY

REACTIONS (9)
  - Nervousness [Unknown]
  - Road traffic accident [Unknown]
  - Overweight [Unknown]
  - Menopausal symptoms [Unknown]
  - Headache [Unknown]
  - Dyspnoea [Unknown]
  - Malaise [Unknown]
  - Product prescribing error [Unknown]
  - Intentional product misuse [Unknown]
